FAERS Safety Report 12662001 (Version 1)
Quarter: 2016Q3

REPORT INFORMATION
  Report Type: Spontaneous
  Country: US (occurrence: US)
  Receive Date: 20160817
  Receipt Date: 20160817
  Transmission Date: 20161109
  Serious: Yes (Hospitalization)
  Sender: FDA-Public Use
  Company Number: US-BAXALTA-2016BLT005819

PATIENT
  Age: 40 Year
  Sex: Female

DRUGS (1)
  1. HYQVIA [Suspect]
     Active Substance: HUMAN IMMUNOGLOBULIN G\HYALURONIDASE RECOMBINANT HUMAN
     Indication: IMMUNODEFICIENCY COMMON VARIABLE
     Dosage: 65 G, EVERY 4 WK
     Route: 058
     Dates: start: 201604

REACTIONS (1)
  - Abscess [Recovering/Resolving]

NARRATIVE: CASE EVENT DATE: 201607
